FAERS Safety Report 23315862 (Version 2)
Quarter: 2024Q1

REPORT INFORMATION
  Report Type: Report from Study
  Country: CN (occurrence: CN)
  Receive Date: 20231219
  Receipt Date: 20240117
  Transmission Date: 20240409
  Serious: No
  Sender: FDA-Public Use
  Company Number: CN-PFIZER INC-PV202300203056

PATIENT
  Age: 91 Year
  Sex: Male

DRUGS (28)
  1. NIRMATRELVIR\RITONAVIR [Suspect]
     Active Substance: NIRMATRELVIR\RITONAVIR
     Indication: COVID-19 treatment
     Dosage: [NIRMATRELVIR 150 MG]/[RITONAVIR 100 MG], Q12H
     Route: 048
     Dates: start: 20220505, end: 20220510
  2. NIRMATRELVIR\RITONAVIR [Suspect]
     Active Substance: NIRMATRELVIR\RITONAVIR
     Dosage: [NIRMATRELVIR 150 MG]/[RITONAVIR 100 MG], Q12H
     Route: 048
     Dates: start: 20220517, end: 20220522
  3. OXYGEN [Concomitant]
     Active Substance: OXYGEN
     Indication: Hypoxia
     Dosage: UNK, INHALATION
     Dates: start: 20220505, end: 20220518
  4. OXYGEN [Concomitant]
     Active Substance: OXYGEN
     Dosage: UNK, INHALATION
     Dates: start: 20220518, end: 20220526
  5. VITAMIN C [Concomitant]
     Active Substance: ASCORBIC ACID
     Indication: Supplementation therapy
     Dosage: UNK
     Route: 042
     Dates: start: 20220505, end: 20220505
  6. VITAMIN C [Concomitant]
     Active Substance: ASCORBIC ACID
     Dosage: UNK
     Route: 042
     Dates: start: 20220505, end: 20220515
  7. VITAMIN B6 [Concomitant]
     Active Substance: PYRIDOXINE HYDROCHLORIDE
     Indication: Supplementation therapy
     Dosage: UNK
     Route: 042
     Dates: start: 20220505, end: 20220505
  8. VITAMIN B6 [Concomitant]
     Active Substance: PYRIDOXINE HYDROCHLORIDE
     Dosage: UNK
     Route: 042
     Dates: start: 20220505, end: 20220515
  9. ENTERAL NUTRITIONAL SUSPENSION (SP) [Concomitant]
     Indication: Supplementation therapy
     Dosage: UNK, ENFERAL
     Route: 048
     Dates: start: 20220505, end: 20220516
  10. ENTERAL NUTRITIONAL SUSPENSION (SP) [Concomitant]
     Dosage: UNK, ENFERAL
     Route: 045
     Dates: start: 20220518, end: 20220526
  11. ENTERAL NUTRITIONAL SUSPENSION (SP) [Concomitant]
     Dosage: UNK, ENFERAL
     Route: 045
     Dates: start: 20220522, end: 20220522
  12. ENTERAL NUTRITIONAL SUSPENSION (SP) [Concomitant]
     Dosage: UNK, ENFERAL
     Route: 045
     Dates: start: 20220522, end: 20220526
  13. ENOXAPARIN SODIUM [Concomitant]
     Active Substance: ENOXAPARIN SODIUM
     Indication: Anticoagulant therapy
     Dosage: UNK
     Route: 058
     Dates: start: 20220505, end: 20220516
  14. ENOXAPARIN SODIUM [Concomitant]
     Active Substance: ENOXAPARIN SODIUM
     Dosage: UNK
     Route: 058
     Dates: start: 20220516, end: 20220518
  15. ENOXAPARIN SODIUM [Concomitant]
     Active Substance: ENOXAPARIN SODIUM
     Dosage: UNK
     Route: 058
     Dates: start: 20220518, end: 20220523
  16. MOSAPRIDE CITRATE [Concomitant]
     Active Substance: MOSAPRIDE CITRATE
     Indication: Gastric hypermotility
     Dosage: UNK
     Route: 048
     Dates: start: 20220515, end: 20220518
  17. MOSAPRIDE CITRATE [Concomitant]
     Active Substance: MOSAPRIDE CITRATE
     Dosage: UNK
     Route: 048
     Dates: start: 20220518, end: 20220518
  18. MOSAPRIDE CITRATE [Concomitant]
     Active Substance: MOSAPRIDE CITRATE
     Dosage: UNK
     Route: 048
     Dates: start: 20220518, end: 20220526
  19. FUROSEMIDE [Concomitant]
     Active Substance: FUROSEMIDE
     Indication: Polyuria
     Dosage: UNK
     Route: 048
     Dates: start: 20220515, end: 20220518
  20. FUROSEMIDE [Concomitant]
     Active Substance: FUROSEMIDE
     Dosage: UNK
     Route: 042
     Dates: start: 20220515, end: 20220515
  21. FUROSEMIDE [Concomitant]
     Active Substance: FUROSEMIDE
     Dosage: UNK
     Route: 048
     Dates: start: 20220518, end: 20220526
  22. SPIRONOLACTONE [Concomitant]
     Active Substance: SPIRONOLACTONE
     Indication: Polyuria
     Dosage: UNK
     Route: 048
     Dates: start: 20220515, end: 20220518
  23. SPIRONOLACTONE [Concomitant]
     Active Substance: SPIRONOLACTONE
     Dosage: UNK
     Route: 048
     Dates: start: 20220518, end: 20220526
  24. POTASSIUM CHLORIDE [Concomitant]
     Active Substance: POTASSIUM CHLORIDE
     Indication: Mineral supplementation
     Dosage: UNK
     Route: 058
     Dates: start: 20220515, end: 20220518
  25. POTASSIUM CHLORIDE [Concomitant]
     Active Substance: POTASSIUM CHLORIDE
     Dosage: UNK
     Route: 048
     Dates: start: 20220518, end: 20220518
  26. POTASSIUM CHLORIDE [Concomitant]
     Active Substance: POTASSIUM CHLORIDE
     Dosage: UNK
     Route: 048
     Dates: start: 20220518, end: 20220521
  27. GLYCERIN [Concomitant]
     Active Substance: GLYCERIN
     Indication: Constipation
     Dosage: UNK
     Route: 054
     Dates: start: 20220516, end: 20220516
  28. GLYCERIN [Concomitant]
     Active Substance: GLYCERIN
     Dosage: UNK
     Route: 054
     Dates: start: 20220520, end: 20220520

REACTIONS (1)
  - Overdose [Unknown]
